FAERS Safety Report 5944392-0 (Version None)
Quarter: 2008Q4

REPORT INFORMATION
  Report Type: 
  Country: None (occurrence: None)
  Receive Date: 20081107
  Receipt Date: 20081031
  Transmission Date: 20090506
  Serious: Yes (Hospitalization)
  Sender: FDA-Public Use
  Company Number: NO-TEVA-179799ISR

PATIENT
  Sex: Female

DRUGS (6)
  1. METHOTREXATE [Suspect]
     Indication: RHEUMATOID ARTHRITIS
     Route: 058
     Dates: start: 19970601, end: 20080701
  2. METHOTREXATE [Suspect]
     Route: 058
  3. ETANERCEPT [Suspect]
     Indication: RHEUMATOID ARTHRITIS
     Route: 058
     Dates: start: 20071011, end: 20080101
  4. ETANERCEPT [Suspect]
     Route: 058
     Dates: start: 20080301, end: 20080601
  5. PREDNISOLONE [Concomitant]
     Dosage: 5-15 MG IN PERIODS WITHOUT METHOTREXATE OR ENBREL/HUMIRA
  6. ADALIMUMAB [Concomitant]
     Indication: RHEUMATOID ARTHRITIS
     Dates: start: 20080701

REACTIONS (1)
  - LYMPHOCYTIC LEUKAEMIA [None]
